FAERS Safety Report 5702480-8 (Version None)
Quarter: 2008Q2

REPORT INFORMATION
  Report Type: 
  Country: None (occurrence: None)
  Receive Date: 20080411
  Receipt Date: 20080402
  Transmission Date: 20081010
  Serious: Yes (Other)
  Sender: FDA-Public Use
  Company Number: US-JNJFOC-20080401836

PATIENT
  Sex: Female
  Weight: 69.4 kg

DRUGS (6)
  1. DURAGESIC-100 [Suspect]
     Indication: BACK PAIN
     Route: 062
  2. FENTANYL TRANSDERMAL SYSTEM [Suspect]
     Route: 062
  3. FENTANYL TRANSDERMAL SYSTEM [Suspect]
     Route: 062
  4. FENTANYL TRANSDERMAL SYSTEM [Suspect]
     Indication: BACK PAIN
     Route: 062
  5. AUGMENTIN '125' [Suspect]
     Indication: SINUSITIS
     Route: 048
  6. OXYCODONE HCL [Concomitant]
     Indication: BACK PAIN
     Route: 048

REACTIONS (6)
  - NAUSEA [None]
  - PAIN [None]
  - ROTATOR CUFF SYNDROME [None]
  - SINUSITIS [None]
  - SOMNOLENCE [None]
  - VOMITING [None]
